FAERS Safety Report 16898462 (Version 1)
Quarter: 2019Q4

REPORT INFORMATION
  Report Type: Spontaneous
  Country: GB (occurrence: GB)
  Receive Date: 20191009
  Receipt Date: 20191009
  Transmission Date: 20200122
  Serious: Yes (Hospitalization, Other)
  Sender: FDA-Public Use
  Company Number: GB-ROCHE-2436834

PATIENT
  Sex: Female
  Weight: 2.72 kg

DRUGS (1)
  1. DIAZEPAM. [Suspect]
     Active Substance: DIAZEPAM
     Indication: PRODUCT USED FOR UNKNOWN INDICATION
     Route: 064

REACTIONS (7)
  - Premature baby [Unknown]
  - Apnoeic attack [Recovered/Resolved]
  - Respiratory depression [Recovered/Resolved]
  - Foetal exposure during pregnancy [Unknown]
  - Areflexia [Recovered/Resolved]
  - Cyanosis [Recovered/Resolved]
  - Hypotonia [Recovered/Resolved]
